FAERS Safety Report 8073869-X (Version None)
Quarter: 2012Q1

REPORT INFORMATION
  Report Type: 
  Country: None (occurrence: None)
  Receive Date: 20120126
  Receipt Date: 20120120
  Transmission Date: 20120608
  Serious: Yes (Other)
  Sender: FDA-Public Use
  Company Number: US-CELGENEUS-163-21880-12012123

PATIENT
  Sex: Female
  Weight: 70.37 kg

DRUGS (6)
  1. ASPIRIN [Concomitant]
     Dosage: 81 MILLIGRAM
     Route: 065
  2. DOXYCYCLINE [Concomitant]
     Dosage: 100 MILLIGRAM
     Route: 065
  3. ZOLOFT [Concomitant]
     Dosage: 50 MILLIGRAM
     Route: 065
  4. XANAX [Concomitant]
     Dosage: .25 MILLIGRAM
     Route: 065
  5. REVLIMID [Suspect]
     Dosage: 15 MILLIGRAM
     Route: 048
     Dates: start: 20110601
  6. COUMADIN [Concomitant]
     Dosage: 1 MILLIGRAM
     Route: 065

REACTIONS (5)
  - DIARRHOEA [None]
  - TREMOR [None]
  - PANIC ATTACK [None]
  - DIZZINESS [None]
  - NAUSEA [None]
